FAERS Safety Report 21440122 (Version 2)
Quarter: 2023Q1

REPORT INFORMATION
  Report Type: Spontaneous
  Country: US (occurrence: US)
  Receive Date: 20221011
  Receipt Date: 20230130
  Transmission Date: 20230418
  Serious: No
  Sender: FDA-Public Use
  Company Number: US-PFIZER INC-PV202200078919

PATIENT
  Age: 19 Year
  Sex: Male

DRUGS (2)
  1. CIBINQO [Suspect]
     Active Substance: ABROCITINIB
     Indication: Dermatitis atopic
     Dosage: 100 MG, DAILY
  2. CIBINQO [Suspect]
     Active Substance: ABROCITINIB
     Indication: Xerosis
     Dosage: 100 MG, 1X/DAY
     Route: 048

REACTIONS (1)
  - No adverse event [Unknown]
